FAERS Safety Report 12676151 (Version 2)
Quarter: 2016Q4

REPORT INFORMATION
  Report Type: Spontaneous
  Country: US (occurrence: US)
  Receive Date: 20160823
  Receipt Date: 20161017
  Transmission Date: 20170207
  Serious: Yes (Other)
  Sender: FDA-Public Use
  Company Number: US-AMGEN-USASP2016108792

PATIENT
  Age: 77 Year
  Sex: Female
  Weight: 73.47 kg

DRUGS (1)
  1. ENBREL [Suspect]
     Active Substance: ETANERCEPT
     Indication: RHEUMATOID ARTHRITIS
     Dosage: 50 MG, QWK
     Route: 058
     Dates: start: 20151008

REACTIONS (3)
  - Feeling abnormal [Unknown]
  - Pneumonia [Unknown]
  - Cystitis [Not Recovered/Not Resolved]
